FAERS Safety Report 8471309-X (Version None)
Quarter: 2012Q2

REPORT INFORMATION
  Report Type: 
  Country: None (occurrence: None)
  Receive Date: 20120627
  Receipt Date: 20120619
  Transmission Date: 20120825
  Serious: Yes (Hospitalization)
  Sender: FDA-Public Use
  Company Number: US-NOVOPROD-350942

PATIENT
  Age: 14 Year
  Sex: Male
  Weight: 39.9 kg

DRUGS (4)
  1. PULMOZYME [Concomitant]
     Indication: PRODUCT USED FOR UNKNOWN INDICATION
     Dosage: UNKNOWN
     Route: 065
  2. NORDITROPIN FLEXPRO [Suspect]
     Dosage: UNK
     Route: 058
     Dates: start: 20120101
  3. TOBRAMYCIN [Concomitant]
     Indication: PRODUCT USED FOR UNKNOWN INDICATION
     Dosage: UNKNOWN
     Route: 065
  4. NORDITROPIN FLEXPRO [Suspect]
     Indication: PRODUCT USED FOR UNKNOWN INDICATION
     Dosage: 1.6 MG, QD
     Route: 058
     Dates: start: 20120401, end: 20120101

REACTIONS (1)
  - CLOSTRIDIAL INFECTION [None]
